FAERS Safety Report 8367283-7 (Version None)
Quarter: 2012Q2

REPORT INFORMATION
  Report Type: 
  Country: None (occurrence: None)
  Receive Date: 20120517
  Receipt Date: 20120514
  Transmission Date: 20120825
  Serious: Yes (Death)
  Sender: FDA-Public Use
  Company Number: PHHY2012JP039231

PATIENT
  Age: 41 Year
  Sex: Female

DRUGS (3)
  1. CYCLOSPORINE [Suspect]
     Dosage: UNK UKN, UNK
     Route: 048
  2. ANABOLIC STEROIDS AND PREPARATIONS [Concomitant]
     Indication: JUVENILE ARTHRITIS
     Dosage: UNK UKN, UNK
     Route: 048
  3. STEROIDS NOS [Concomitant]
     Indication: RASH
     Dosage: UNK UKN, UNK

REACTIONS (2)
  - STAPHYLOCOCCAL SEPSIS [None]
  - GASTROINTESTINAL HAEMORRHAGE [None]
